FAERS Safety Report 5376302-1 (Version None)
Quarter: 2007Q3

REPORT INFORMATION
  Report Type: 
  Country: None (occurrence: None)
  Receive Date: 20070702
  Receipt Date: 20070619
  Transmission Date: 20080115
  Serious: Yes (Congenital Anomaly, Other)
  Sender: FDA-Public Use
  Company Number: GB-PURDUE-DEU_2007_0003421

PATIENT
  Age: 118 Month

DRUGS (3)
  1. DIHYDROCODEINE BITARTATE [Suspect]
     Indication: DRUG EXPOSURE DURING PREGNANCY
     Route: 015
  2. DIAZEPAM [Suspect]
     Indication: DRUG EXPOSURE DURING PREGNANCY
     Route: 015
  3. ALCOHOL [Suspect]
     Indication: DRUG EXPOSURE DURING PREGNANCY
     Route: 015

REACTIONS (6)
  - ABNORMAL BEHAVIOUR [None]
  - CONGENITAL NYSTAGMUS [None]
  - DEVELOPMENTAL DELAY [None]
  - HYPERMETROPIA [None]
  - LEARNING DISORDER [None]
  - POSTURE ABNORMAL [None]
